FAERS Safety Report 12417107 (Version 1)
Quarter: 2016Q2

REPORT INFORMATION
  Report Type: Report from Study
  Country: US (occurrence: US)
  Receive Date: 20160530
  Receipt Date: 20160530
  Transmission Date: 20160815
  Serious: Yes (Other)
  Sender: FDA-Public Use
  Company Number: US-JNJFOC-20140819088

PATIENT
  Age: 46 Year
  Sex: Female
  Weight: 79.38 kg

DRUGS (5)
  1. METHOTREXATE [Concomitant]
     Active Substance: METHOTREXATE
     Indication: RHEUMATOID ARTHRITIS
     Dosage: 25MG/1ML
     Route: 058
     Dates: start: 2007
  2. LEUCOVORIN. [Concomitant]
     Active Substance: LEUCOVORIN
     Indication: PROPHYLAXIS
     Dosage: 5MG/THREE TABLETS ONCE DAILY FOR THREE DAYS AFTER EACH WEEKLY METHOTREXATE??INJECTION/ORAL
     Route: 048
  3. SIMPONI [Suspect]
     Active Substance: GOLIMUMAB
     Indication: RHEUMATOID ARTHRITIS
     Route: 058
     Dates: start: 2012, end: 2014
  4. DEXILANT [Concomitant]
     Active Substance: DEXLANSOPRAZOLE
     Indication: GASTROOESOPHAGEAL REFLUX DISEASE
     Route: 048
     Dates: start: 2013
  5. VALIUM [Concomitant]
     Active Substance: DIAZEPAM
     Indication: OESOPHAGEAL SPASM
     Dosage: ONCE TABLET EVERY 8 HOURS AS NEEDED
     Route: 048
     Dates: start: 2013

REACTIONS (8)
  - Ligament sprain [Recovering/Resolving]
  - Intervertebral disc protrusion [Recovering/Resolving]
  - Treatment noncompliance [Unknown]
  - General physical health deterioration [Unknown]
  - Pollakiuria [Not Recovered/Not Resolved]
  - Abdominal pain [Not Recovered/Not Resolved]
  - Back pain [Not Recovered/Not Resolved]
  - Urinary retention [Not Recovered/Not Resolved]

NARRATIVE: CASE EVENT DATE: 201310
